FAERS Safety Report 8435703-5 (Version None)
Quarter: 2012Q2

REPORT INFORMATION
  Report Type: 
  Country: None (occurrence: None)
  Receive Date: 20120614
  Receipt Date: 20120611
  Transmission Date: 20120825
  Serious: Yes (Other)
  Sender: FDA-Public Use
  Company Number: US-JNJFOC-20120605826

PATIENT
  Age: 79 Year
  Sex: Female

DRUGS (3)
  1. BENADRYL [Suspect]
     Indication: SINUS DISORDER
     Dosage: ONE PILL ONE TIME
     Route: 048
     Dates: start: 20120606, end: 20120607
  2. AN UNKNOWN MEDICATION [Concomitant]
     Route: 065
  3. BENADRYL [Suspect]
     Indication: NASOPHARYNGITIS
     Dosage: ONE PILL ONE TIME
     Route: 048
     Dates: start: 20120606, end: 20120607

REACTIONS (2)
  - OFF LABEL USE [None]
  - LOSS OF CONSCIOUSNESS [None]
